FAERS Safety Report 20795933 (Version 3)
Quarter: 2022Q3

REPORT INFORMATION
  Report Type: Spontaneous
  Country: JP (occurrence: JP)
  Receive Date: 20220506
  Receipt Date: 20220705
  Transmission Date: 20221026
  Serious: No
  Sender: FDA-Public Use
  Company Number: JP-GLAXOSMITHKLINE-JP2022JPN072035

PATIENT

DRUGS (11)
  1. SOTROVIMAB [Suspect]
     Active Substance: SOTROVIMAB
     Indication: Coronavirus test positive
     Dosage: 500 MG
     Route: 042
     Dates: start: 20220329, end: 20220329
  2. AMBROXOL HYDROCHLORIDE [Suspect]
     Active Substance: AMBROXOL HYDROCHLORIDE
     Dosage: 45 MG/DAY
     Route: 048
     Dates: start: 20220407
  3. OXICONAZOLE NITRATE [Suspect]
     Active Substance: OXICONAZOLE NITRATE
     Dosage: 600 MG/DAY
     Route: 067
     Dates: start: 20220210
  4. MAGNESIUM OXIDE [Suspect]
     Active Substance: MAGNESIUM OXIDE
     Dosage: 990 MG/DAY
     Route: 048
     Dates: start: 20211111
  5. CLOTRIMAZOLE [Suspect]
     Active Substance: CLOTRIMAZOLE
     Dosage: UNK
     Route: 003
     Dates: start: 20220310
  6. HERBALS [Suspect]
     Active Substance: HERBALS
     Dosage: 9 G/DAY
     Route: 048
     Dates: start: 20220328
  7. CALONAL [Suspect]
     Active Substance: ACETAMINOPHEN
     Indication: Pyrexia
     Dosage: PRN, WHEN HAVING FEVER
     Route: 048
     Dates: start: 20220328
  8. DEXTROMETHORPHAN [Suspect]
     Active Substance: DEXTROMETHORPHAN
     Dosage: 45 MG/DAY
     Route: 048
     Dates: start: 20220330
  9. SYMBICORT [Suspect]
     Active Substance: BUDESONIDE\FORMOTEROL FUMARATE DIHYDRATE
     Dosage: UNK
     Route: 055
     Dates: start: 20220407
  10. HERBALS [Suspect]
     Active Substance: HERBALS
     Dosage: 9 G/DAY
     Route: 048
     Dates: start: 20220407
  11. DOMIPHEN BROMIDE [Suspect]
     Active Substance: DOMIPHEN BROMIDE
     Dosage: 6 DF/DAY
     Dates: start: 20220328

REACTIONS (1)
  - Exposure during pregnancy [Unknown]
